FAERS Safety Report 8885900 (Version 1)
Quarter: 2012Q4

REPORT INFORMATION
  Report Type: 
  Country: JP (occurrence: JP)
  Receive Date: 20121101
  Receipt Date: 20121101
  Transmission Date: 20130627
  Serious: Yes (Hospitalization)
  Sender: FDA-Public Use
  Company Number: JP-ALLERGAN-1214871US

PATIENT
  Sex: Male

DRUGS (2)
  1. BOTOX [Suspect]
     Indication: MUSCLE SPASMS
     Dosage: 200 UNITS, single
     Route: 030
     Dates: start: 20120717, end: 20120717
  2. PLETAAL [Concomitant]
     Indication: CEREBRAL INFARCTION
     Route: 048

REACTIONS (1)
  - Cerebral haemorrhage [Unknown]
